FAERS Safety Report 6997965-0 (Version None)
Quarter: 2010Q3

REPORT INFORMATION
  Report Type: 
  Country: None (occurrence: None)
  Receive Date: 20100920
  Receipt Date: 20100906
  Transmission Date: 20110219
  Serious: Yes (Other)
  Sender: FDA-Public Use
  Company Number: AU-JNJFOC-20100902648

PATIENT
  Sex: Male

DRUGS (7)
  1. REMICADE [Suspect]
     Indication: ANKYLOSING SPONDYLITIS
     Route: 042
  2. FISH OIL [Concomitant]
  3. ATORVASTATIN [Concomitant]
  4. IRBESARTAN [Concomitant]
  5. NAPROSYN [Concomitant]
  6. OMEPRAZOLE [Concomitant]
  7. EYE DROP MEDICATIONS [Concomitant]

REACTIONS (4)
  - DYSGEUSIA [None]
  - GUILLAIN-BARRE SYNDROME [None]
  - OROPHARYNGEAL PAIN [None]
  - POLYNEUROPATHY [None]
